FAERS Safety Report 6471623-3 (Version None)
Quarter: 2009Q4

REPORT INFORMATION
  Report Type: 
  Country: None (occurrence: None)
  Receive Date: 20091203
  Receipt Date: 20080324
  Transmission Date: 20100525
  Serious: Yes (Other)
  Sender: FDA-Public Use
  Company Number: US-ELI_LILLY_AND_COMPANY-US200803001794

PATIENT
  Sex: Male
  Weight: 127.44 kg

DRUGS (8)
  1. CYMBALTA [Suspect]
     Indication: DEPRESSION
     Dosage: 30 MG, UNK
     Dates: start: 20080201, end: 20080201
  2. CYMBALTA [Suspect]
     Dosage: 60 MG, UNK
  3. WARFARIN SODIUM [Concomitant]
     Dosage: 4 MG, DAILY (1/D)
  4. LANTUS [Concomitant]
     Dosage: 42 U, DAILY (1/D)
     Route: 058
  5. NOVOLOG [Concomitant]
     Dosage: SLIDING SCALE
  6. ALTACE [Concomitant]
     Dosage: 5 MG, DAILY (1/D)
  7. TOPROL-XL [Concomitant]
     Dosage: 100 MG, DAILY (1/D)
  8. RANITIDINE [Concomitant]
     Dosage: 300 MG, 2/D

REACTIONS (1)
  - PRIAPISM [None]
